FAERS Safety Report 6007121-0 (Version None)
Quarter: 2008Q4

REPORT INFORMATION
  Report Type: 
  Country: None (occurrence: None)
  Receive Date: 20081217
  Receipt Date: 20080123
  Transmission Date: 20090506
  Serious: No
  Sender: FDA-Public Use
  Company Number: US-ASTRAZENECA-2008UW01654

PATIENT
  Age: 65 Year
  Sex: Female
  Weight: 56.7 kg

DRUGS (3)
  1. CRESTOR [Suspect]
     Route: 048
     Dates: start: 20070801
  2. TOPROL-XL [Concomitant]
     Indication: ARRHYTHMIA SUPRAVENTRICULAR
  3. ASPIRIN [Concomitant]
     Route: 048

REACTIONS (3)
  - HYPERTENSION [None]
  - NAUSEA [None]
  - WEIGHT INCREASED [None]
